FAERS Safety Report 14951926 (Version 2)
Quarter: 2018Q3

REPORT INFORMATION
  Report Type: Spontaneous
  Country: US (occurrence: US)
  Receive Date: 20180530
  Receipt Date: 20180706
  Transmission Date: 20181010
  Serious: No
  Sender: FDA-Public Use
  Company Number: US-GLAXOSMITHKLINE-US2018GSK089834

PATIENT
  Age: 53 Year
  Sex: Female

DRUGS (4)
  1. VALTREX [Suspect]
     Active Substance: VALACYCLOVIR HYDROCHLORIDE
     Indication: PRODUCT USED FOR UNKNOWN INDICATION
     Dosage: 500 MG, TID
  2. ACYCLOVIR. [Suspect]
     Active Substance: ACYCLOVIR
     Indication: PRODUCT USED FOR UNKNOWN INDICATION
  3. FAMCICLOVIR. [Suspect]
     Active Substance: FAMCICLOVIR
     Indication: PRODUCT USED FOR UNKNOWN INDICATION
  4. VALACYCLOVIR [Suspect]
     Active Substance: VALACYCLOVIR HYDROCHLORIDE
     Indication: PRODUCT USED FOR UNKNOWN INDICATION

REACTIONS (7)
  - Headache [Unknown]
  - Dizziness [Unknown]
  - Back pain [Recovered/Resolved]
  - Vomiting projectile [Unknown]
  - Expired product administered [Unknown]
  - Nausea [Unknown]
  - Ill-defined disorder [Unknown]

NARRATIVE: CASE EVENT DATE: 201805
